FAERS Safety Report 6046663-9 (Version None)
Quarter: 2009Q1

REPORT INFORMATION
  Report Type: 
  Country: None (occurrence: None)
  Receive Date: 20090122
  Receipt Date: 20090116
  Transmission Date: 20090719
  Serious: Yes (Death, Life-Threatening, Hospitalization)
  Sender: FDA-Public Use
  Company Number: JP-BAYER-200812355BYL

PATIENT
  Age: 78 Year
  Sex: Female
  Weight: 55 kg

DRUGS (6)
  1. NEXAVAR [Suspect]
     Indication: RENAL CELL CARCINOMA STAGE IV
     Dosage: TOTAL DAILY DOSE: 400 MG  UNIT DOSE: 200 MG
     Route: 048
     Dates: start: 20080818, end: 20080930
  2. DIOVAN [Concomitant]
     Indication: HYPERTENSION
     Route: 048
     Dates: start: 20080818
  3. CORTRIL [Concomitant]
     Indication: ADRENAL INSUFFICIENCY
     Route: 048
     Dates: start: 20080818
  4. ADALAT CC [Concomitant]
     Indication: HYPERTENSION
     Route: 048
     Dates: start: 20080818
  5. LASIX [Concomitant]
     Indication: HYPERTENSION
     Route: 048
     Dates: start: 20080818
  6. BLADDERON [Concomitant]
     Indication: CYSTITIS NONINFECTIVE
     Route: 048
     Dates: start: 20080818

REACTIONS (6)
  - ADRENAL INSUFFICIENCY [None]
  - ADRENOCORTICAL INSUFFICIENCY ACUTE [None]
  - CARDIO-RESPIRATORY ARREST [None]
  - GASTROINTESTINAL DISORDER [None]
  - INFERIOR VENA CAVAL OCCLUSION [None]
  - RENAL CELL CARCINOMA STAGE IV [None]
